FAERS Safety Report 5716605-1 (Version None)
Quarter: 2008Q2

REPORT INFORMATION
  Report Type: 
  Country: None (occurrence: None)
  Receive Date: 20080424
  Receipt Date: 20080416
  Transmission Date: 20081010
  Serious: Yes (Hospitalization)
  Sender: FDA-Public Use
  Company Number: US-ELI_LILLY_AND_COMPANY-US200804004289

PATIENT
  Sex: Male

DRUGS (2)
  1. HUMULIN R [Suspect]
     Dosage: 90 U, UNK
  2. HUMULIN R [Suspect]
     Dosage: 900 U, UNK

REACTIONS (2)
  - BLOOD GLUCOSE DECREASED [None]
  - INCORRECT DOSE ADMINISTERED [None]
